FAERS Safety Report 8624167 (Version 4)
Quarter: 2013Q2

REPORT INFORMATION
  Report Type: Report from Study
  Country: CA (occurrence: CA)
  Receive Date: 20120620
  Receipt Date: 20130530
  Transmission Date: 20140414
  Serious: Yes (Death, Hospitalization, Other)
  Sender: FDA-Public Use
  Company Number: CA-ROCHE-1078890

PATIENT
  Age: 61 Year
  Sex: Female
  Weight: 83.9 kg

DRUGS (6)
  1. RITUXAN [Suspect]
     Indication: RHEUMATOID ARTHRITIS
     Route: 042
     Dates: start: 20120202
  2. PLAQUENIL [Concomitant]
  3. METHOTREXATE [Concomitant]
  4. DIPHENHYDRAMINE HCL [Concomitant]
     Route: 048
     Dates: start: 20120202, end: 20120222
  5. ACETAMINOPHEN [Concomitant]
     Route: 048
     Dates: start: 20120202, end: 20120222
  6. METHYLPREDNISOLONE [Concomitant]
     Route: 042
     Dates: start: 20120202, end: 20120222

REACTIONS (3)
  - Death [Fatal]
  - Lung neoplasm malignant [Unknown]
  - Disease progression [Unknown]
